FAERS Safety Report 8319577-9 (Version None)
Quarter: 2012Q2

REPORT INFORMATION
  Report Type: 
  Country: None (occurrence: None)
  Receive Date: 20120427
  Receipt Date: 20120423
  Transmission Date: 20120825
  Serious: Yes (Death)
  Sender: FDA-Public Use
  Company Number: PHHY2012US035314

PATIENT
  Age: 53 Year
  Sex: Male

DRUGS (5)
  1. METOPROLOL TARTRATE [Suspect]
  2. OXYCODONE HYDROCHLORIDE [Suspect]
     Dosage: 0.54 UG/ML, UNK
  3. PROPOXYPHENE HYDROCHLORIDE [Suspect]
     Dosage: 0.36 UG/ML, UNK
  4. FLUOXETINE [Suspect]
  5. NORPROPOXYPHENE [Suspect]
     Dosage: 0.48 UG/ML, UNK

REACTIONS (1)
  - DEATH [None]
